FAERS Safety Report 4297689-7 (Version None)
Quarter: 2004Q1

REPORT INFORMATION
  Report Type: 
  Country: None (occurrence: None)
  Receive Date: 20040126
  Receipt Date: 20031103
  Transmission Date: 20041129
  Serious: No
  Sender: FDA-Public Use
  Company Number: USA031151491

PATIENT
  Age: 8 Year
  Sex: Male
  Weight: 32 kg

DRUGS (3)
  1. STRATTERA [Suspect]
     Dosage: 40 MG/IN THE MORNING
     Dates: start: 20031001
  2. STRATTERA [Suspect]
     Dosage: 40 MG/IN THE EVENING
     Dates: start: 20031001
  3. CLARITIN [Concomitant]

REACTIONS (6)
  - ANGER [None]
  - ANOREXIA [None]
  - COGNITIVE DISORDER [None]
  - DEPRESSED MOOD [None]
  - FEELING ABNORMAL [None]
  - PRESCRIBED OVERDOSE [None]
